FAERS Safety Report 4900738-3 (Version None)
Quarter: 2006Q1

REPORT INFORMATION
  Report Type: 
  Country: None (occurrence: None)
  Receive Date: 20060201
  Receipt Date: 20060117
  Transmission Date: 20060701
  Serious: Yes (Hospitalization)
  Sender: FDA-Public Use
  Company Number: S06-BEL-00254-01

PATIENT
  Age: 80 Year
  Sex: Male
  Weight: 50 kg

DRUGS (3)
  1. MEMANTINE HCL [Suspect]
  2. ACETYLCYSTEINE [Concomitant]
  3. ATENOLOL [Concomitant]

REACTIONS (3)
  - ASTHENIA [None]
  - DISTURBANCE IN ATTENTION [None]
  - RESPIRATORY TRACT INFECTION [None]
